FAERS Safety Report 23236027 (Version 2)
Quarter: 2023Q4

REPORT INFORMATION
  Report Type: Spontaneous
  Country: US (occurrence: US)
  Receive Date: 20231128
  Receipt Date: 20231213
  Transmission Date: 20240109
  Serious: Yes (Life-Threatening, Hospitalization, Other)
  Sender: FDA-Public Use
  Company Number: US-002147023-NVSC2023US250225

PATIENT
  Age: 77 Year
  Sex: Male
  Weight: 94.3 kg

DRUGS (2)
  1. INCLISIRAN [Suspect]
     Active Substance: INCLISIRAN
     Indication: Low density lipoprotein increased
     Dosage: 284 MG, ONE SINGLE DOSE
     Route: 058
     Dates: start: 20231117, end: 20231120
  2. INCLISIRAN [Suspect]
     Active Substance: INCLISIRAN
     Indication: Drug intolerance

REACTIONS (4)
  - Deep vein thrombosis [Recovering/Resolving]
  - Pulmonary embolism [Recovering/Resolving]
  - Pain in extremity [Unknown]
  - Peripheral swelling [Unknown]

NARRATIVE: CASE EVENT DATE: 20231121
